FAERS Safety Report 15986718 (Version 5)
Quarter: 2020Q1

REPORT INFORMATION
  Report Type: Spontaneous
  Country: US (occurrence: US)
  Receive Date: 20190220
  Receipt Date: 20200225
  Transmission Date: 20200409
  Serious: Yes (Death, Other)
  Sender: FDA-Public Use
  Company Number: US-ACTELION-A-US2019-185696

PATIENT
  Age: 66 Year
  Sex: Female

DRUGS (1)
  1. OPSUMIT [Suspect]
     Active Substance: MACITENTAN
     Indication: PULMONARY ARTERIAL HYPERTENSION
     Dosage: 10 MG, QD
     Route: 048
     Dates: start: 20181208

REACTIONS (6)
  - Weight increased [Unknown]
  - Fluid retention [Recovering/Resolving]
  - Terminal state [Unknown]
  - Death [Fatal]
  - Malaise [Unknown]
  - Unevaluable event [Unknown]

NARRATIVE: CASE EVENT DATE: 20200209
